FAERS Safety Report 16695476 (Version 2)
Quarter: 2019Q3

REPORT INFORMATION
  Report Type: Report from Study
  Country: US (occurrence: US)
  Receive Date: 20190813
  Receipt Date: 20190828
  Transmission Date: 20191004
  Serious: Yes (Other)
  Sender: FDA-Public Use
  Company Number: US-ROCHE-2368378

PATIENT
  Sex: Female
  Weight: 62.2 kg

DRUGS (4)
  1. OCREVUS [Suspect]
     Active Substance: OCRELIZUMAB
     Dosage: FULL DOSES
     Route: 065
     Dates: start: 201812
  2. OCREVUS [Suspect]
     Active Substance: OCRELIZUMAB
     Indication: RELAPSING MULTIPLE SCLEROSIS
     Route: 065
     Dates: start: 20180612
  3. OCREVUS [Suspect]
     Active Substance: OCRELIZUMAB
     Route: 065
     Dates: start: 20180626
  4. OCREVUS [Suspect]
     Active Substance: OCRELIZUMAB
     Dosage: FULL DOSES
     Route: 065
     Dates: start: 20190610

REACTIONS (4)
  - Diverticulitis [Unknown]
  - Pain [Recovering/Resolving]
  - Candida infection [Not Recovered/Not Resolved]
  - Gait disturbance [Recovered/Resolved]
